FAERS Safety Report 5065905-X (Version None)
Quarter: 2006Q3

REPORT INFORMATION
  Report Type: 
  Country: None (occurrence: None)
  Receive Date: 20060726
  Receipt Date: 20060712
  Transmission Date: 20061208
  Serious: Yes (Life-Threatening, Disabling)
  Sender: FDA-Public Use
  Company Number: AZADE200600023

PATIENT
  Age: 74 Year
  Sex: Male
  Weight: 85 kg

DRUGS (3)
  1. AZACITIDINE            (AZACITIDINE) [Suspect]
     Indication: MYELODYSPLASTIC SYNDROME
     Dosage: 75 MG/M2 (150 MG. DAILY X 7 DAYS), SUBCUTANEOUS
     Route: 058
     Dates: start: 20051107, end: 20051113
  2. METOPROLOL (METOPROLOL) [Concomitant]
  3. NIFEDIPINE [Concomitant]

REACTIONS (3)
  - PULMONARY FIBROSIS [None]
  - RETINAL ARTERY OCCLUSION [None]
  - THERAPY NON-RESPONDER [None]
